FAERS Safety Report 6465645-6 (Version None)
Quarter: 2009Q4

REPORT INFORMATION
  Report Type: 
  Country: None (occurrence: None)
  Receive Date: 20091124
  Receipt Date: 20091109
  Transmission Date: 20100525
  Serious: Yes (Hospitalization, Other)
  Sender: FDA-Public Use
  Company Number: AUR-APL-2009-01268

PATIENT
  Age: 38 Year
  Sex: Female

DRUGS (4)
  1. STAVUDINE [Suspect]
     Indication: HIV INFECTION
     Dosage: 60MG - DAILY
  2. LAMIVUDINE [Suspect]
     Indication: HIV INFECTION
     Dosage: 300MG - DAILY
  3. EFAVIRENZ [Suspect]
     Indication: HIV INFECTION
     Dosage: 600MG - DAILY
  4. ANTITUBERCULOUS THERAPY (NOT SPECIFIED) [Suspect]
     Indication: TUBERCULOSIS

REACTIONS (8)
  - ALANINE AMINOTRANSFERASE INCREASED [None]
  - ANAEMIA [None]
  - ASPARTATE AMINOTRANSFERASE INCREASED [None]
  - GENERAL PHYSICAL HEALTH DETERIORATION [None]
  - HEPATOMEGALY [None]
  - IMMUNE RECONSTITUTION SYNDROME [None]
  - LYMPH NODE TUBERCULOSIS [None]
  - TUBERCULOSIS [None]
